FAERS Safety Report 11449210 (Version 6)
Quarter: 2016Q1

REPORT INFORMATION
  Report Type: Report from Study
  Country: JP (occurrence: JP)
  Receive Date: 20150902
  Receipt Date: 20160222
  Transmission Date: 20160525
  Serious: Yes (Death, Hospitalization)
  Sender: FDA-Public Use
  Company Number: JP-EISAI MEDICAL RESEARCH-EC-2015-010127

PATIENT
  Age: 64 Year
  Sex: Male
  Weight: 60 kg

DRUGS (2)
  1. LENVIMA [Suspect]
     Active Substance: LENVATINIB
     Indication: ANAPLASTIC THYROID CANCER
     Route: 048
     Dates: start: 20150709, end: 20150826
  2. CANDESARTAN [Concomitant]
     Active Substance: CANDESARTAN

REACTIONS (3)
  - Malignant neoplasm progression [Fatal]
  - Arterial haemorrhage [Fatal]
  - Odynophagia [Unknown]

NARRATIVE: CASE EVENT DATE: 20150817
